FAERS Safety Report 16122648 (Version 2)
Quarter: 2019Q2

REPORT INFORMATION
  Report Type: Spontaneous
  Country: US (occurrence: US)
  Receive Date: 20190327
  Receipt Date: 20190523
  Transmission Date: 20190711
  Serious: No
  Sender: FDA-Public Use
  Company Number: US-BAUSCH-BL-2019-006600

PATIENT
  Age: 80 Year
  Sex: Male

DRUGS (3)
  1. ARESTIN [Suspect]
     Active Substance: MINOCYCLINE HYDROCHLORIDE
     Route: 048
     Dates: start: 20190130, end: 20190130
  2. ARESTIN [Suspect]
     Active Substance: MINOCYCLINE HYDROCHLORIDE
     Indication: ADJUVANT THERAPY
     Route: 048
     Dates: start: 20190115, end: 20190115
  3. ARESTIN [Suspect]
     Active Substance: MINOCYCLINE HYDROCHLORIDE
     Route: 048
     Dates: start: 20190208, end: 20190208

REACTIONS (3)
  - Product quality issue [Unknown]
  - Gingival bleeding [Unknown]
  - Gingival swelling [Unknown]

NARRATIVE: CASE EVENT DATE: 20190130
